FAERS Safety Report 19976868 (Version 2)
Quarter: 2022Q3

REPORT INFORMATION
  Report Type: Spontaneous
  Country: US (occurrence: US)
  Receive Date: 20211021
  Receipt Date: 20220824
  Transmission Date: 20221027
  Serious: Yes (Life-Threatening, Hospitalization)
  Sender: FDA-Public Use
  Company Number: US-BOEHRINGERINGELHEIM-2021-BI-133368

PATIENT
  Age: 79 Year
  Sex: Male

DRUGS (1)
  1. PRADAXA [Suspect]
     Active Substance: DABIGATRAN ETEXILATE MESYLATE
     Indication: Product used for unknown indication
     Dosage: WITH WATER
     Route: 048

REACTIONS (2)
  - Heart rate increased [Recovering/Resolving]
  - Stent placement [Unknown]

NARRATIVE: CASE EVENT DATE: 20211015
